FAERS Safety Report 8617336-0 (Version None)
Quarter: 2012Q3

REPORT INFORMATION
  Report Type: 
  Country: None (occurrence: None)
  Receive Date: 20120823
  Receipt Date: 20120814
  Transmission Date: 20120928
  Serious: Yes (Hospitalization, Disabling, Other)
  Sender: FDA-Public Use
  Company Number: US-009507513-2011SP006459

PATIENT

DRUGS (3)
  1. NUVARING [Suspect]
     Indication: CONTRACEPTION
     Route: 067
     Dates: start: 20070301, end: 20090101
  2. HYDROCHLOROTHIAZIDE [Suspect]
     Dosage: 25 MG, QD
     Route: 048
     Dates: start: 20090101, end: 20090101
  3. HYDROCHLOROTHIAZIDE [Suspect]
     Indication: HYPERTENSION
     Dosage: 12.5 MG, QAM
     Route: 048
     Dates: start: 20071001, end: 20090122

REACTIONS (16)
  - ESSENTIAL HYPERTENSION [None]
  - PULMONARY EMBOLISM [None]
  - ROAD TRAFFIC ACCIDENT [None]
  - COSTOCHONDRITIS [None]
  - HEAD INJURY [None]
  - VENOUS INSUFFICIENCY [None]
  - MENORRHAGIA [None]
  - DEEP VEIN THROMBOSIS [None]
  - HYPERCOAGULATION [None]
  - PLANTAR FASCIITIS [None]
  - HYPOKALAEMIA [None]
  - PAIN IN EXTREMITY [None]
  - MIGRAINE [None]
  - PHLEBITIS [None]
  - UTERINE LEIOMYOMA [None]
  - DYSMENORRHOEA [None]
